FAERS Safety Report 16353654 (Version 3)
Quarter: 2019Q2

REPORT INFORMATION
  Report Type: Spontaneous
  Country: JP (occurrence: JP)
  Receive Date: 20190524
  Receipt Date: 20190627
  Transmission Date: 20190711
  Serious: Yes (Hospitalization, Other)
  Sender: FDA-Public Use
  Company Number: JP-AMGEN-JPNSP2019053070

PATIENT
  Age: 76 Year
  Sex: Male
  Weight: 61.7 kg

DRUGS (11)
  1. OXAROL [Concomitant]
     Active Substance: MAXACALCITOL
     Dosage: 3.3 UG, Q56H
     Route: 010
     Dates: start: 20181015, end: 20181112
  2. EPOETIN ALFA [Concomitant]
     Active Substance: ERYTHROPOIETIN
     Dosage: 7500 UNK, QW
     Route: 051
     Dates: start: 20181010, end: 20181112
  3. RIONA [Concomitant]
     Active Substance: FERRIC CITRATE ANHYDROUS
     Dosage: 750 MG, EVERYDAY
     Route: 048
     Dates: start: 20190111
  4. PARSABIV [Suspect]
     Active Substance: ETELCALCETIDE HYDROCHLORIDE
     Indication: HYPERPARATHYROIDISM SECONDARY
     Dosage: 5 MILLIGRAM, 3 TIMES/WK
     Route: 010
     Dates: start: 20180912
  5. NESP [Concomitant]
     Active Substance: DARBEPOETIN ALFA
     Dosage: 40 MICROGRAM, QWK
     Route: 065
     Dates: start: 20190208
  6. EPOETIN ALFA [Concomitant]
     Active Substance: ERYTHROPOIETIN
     Dosage: 9000 UNK, QW
     Route: 051
     Dates: start: 20181114, end: 20190206
  7. OXAROL [Concomitant]
     Active Substance: MAXACALCITOL
     Dosage: 4.2 UG, Q56H
     Route: 010
     Dates: start: 20181114
  8. FOSRENOL [Concomitant]
     Active Substance: LANTHANUM CARBONATE
     Dosage: 750 MILLIGRAM, QD
     Dates: end: 20190110
  9. OXAROL [Concomitant]
     Active Substance: MAXACALCITOL
     Dosage: 2.5 UG, Q56H
     Route: 010
     Dates: start: 20180718, end: 20181012
  10. EPOETIN ALFA [Concomitant]
     Active Substance: ERYTHROPOIETIN
     Dosage: 6000 UNK, QW
     Route: 051
     Dates: end: 20181008
  11. FERROMIA [Concomitant]
     Active Substance: SODIUM FERROUS CITRATE
     Dosage: 50 MG, EVERYDAY
     Route: 048
     Dates: end: 20190110

REACTIONS (3)
  - Muscle spasms [Recovering/Resolving]
  - Left ventricular dysfunction [Not Recovered/Not Resolved]
  - Ventricular hypokinesia [Not Recovered/Not Resolved]

NARRATIVE: CASE EVENT DATE: 20190221
